FAERS Safety Report 13987328 (Version 1)
Quarter: 2017Q3

REPORT INFORMATION
  Report Type: Spontaneous
  Country: GB (occurrence: GB)
  Receive Date: 20170919
  Receipt Date: 20170919
  Transmission Date: 20171128
  Serious: Yes (Disabling, Other)
  Sender: FDA-Public Use
  Company Number: GB-DRREDDYS-GER/UKI/17/0093489

PATIENT
  Age: 37 Year
  Sex: Female
  Weight: 58.51 kg

DRUGS (2)
  1. FLUOXETINE [Suspect]
     Active Substance: FLUOXETINE HYDROCHLORIDE
     Indication: POST-TRAUMATIC STRESS DISORDER
     Route: 048
     Dates: start: 20150904, end: 20151029
  2. FLUOXETINE [Suspect]
     Active Substance: FLUOXETINE HYDROCHLORIDE
     Route: 048
     Dates: start: 20151030, end: 20151204

REACTIONS (4)
  - Apathy [Recovered/Resolved]
  - Depression [Recovered/Resolved]
  - Drug ineffective [Unknown]
  - Decreased interest [Unknown]

NARRATIVE: CASE EVENT DATE: 20150910
